FAERS Safety Report 9319606 (Version 2)
Quarter: 2013Q4

REPORT INFORMATION
  Report Type: Spontaneous
  Country: US (occurrence: US)
  Receive Date: 20130530
  Receipt Date: 20131113
  Transmission Date: 20140711
  Serious: Yes (Hospitalization)
  Sender: FDA-Public Use
  Company Number: US-GLAXOSMITHKLINE-A1011749A

PATIENT
  Sex: Male

DRUGS (4)
  1. FLOLAN [Suspect]
     Indication: PULMONARY ARTERIAL HYPERTENSION
     Dosage: 21NGKM CONTINUOUS
     Route: 042
     Dates: start: 20090514
  2. DIGOXIN [Suspect]
     Indication: PRODUCT USED FOR UNKNOWN INDICATION
     Route: 065
  3. WARFARIN [Suspect]
     Indication: PRODUCT USED FOR UNKNOWN INDICATION
  4. ADCIRCA [Concomitant]

REACTIONS (9)
  - Endotracheal intubation [Unknown]
  - Infusion site erythema [Unknown]
  - Infusion site pain [Unknown]
  - Infusion site bruising [Unknown]
  - Dehydration [Unknown]
  - Cardioactive drug level increased [Unknown]
  - Renal disorder [Unknown]
  - Hypotension [Unknown]
  - Heart rate decreased [Unknown]
